FAERS Safety Report 25140326 (Version 1)
Quarter: 2025Q1

REPORT INFORMATION
  Report Type: Spontaneous
  Country: CA (occurrence: CA)
  Receive Date: 20250331
  Receipt Date: 20250331
  Transmission Date: 20250408
  Serious: Yes (Other)
  Sender: MYLAN
  Company Number: CA-MYLANLABS-2025M1025807

PATIENT
  Age: 34 Year
  Sex: Female

DRUGS (2)
  1. EPINEPHRINE [Suspect]
     Active Substance: EPINEPHRINE
     Indication: Product used for unknown indication
  2. OMALIZUMAB [Suspect]
     Active Substance: OMALIZUMAB
     Indication: Chronic spontaneous urticaria

REACTIONS (6)
  - Food allergy [Recovering/Resolving]
  - Memory impairment [Recovering/Resolving]
  - Myocardial infarction [Recovering/Resolving]
  - Nervousness [Recovering/Resolving]
  - Perfume sensitivity [Recovering/Resolving]
  - Urticaria [Recovering/Resolving]
